FAERS Safety Report 23382242 (Version 1)
Quarter: 2024Q1

REPORT INFORMATION
  Report Type: Spontaneous
  Country: US (occurrence: US)
  Receive Date: 20240109
  Receipt Date: 20240109
  Transmission Date: 20240409
  Serious: No
  Sender: FDA-Public Use
  Company Number: US-BRISTOL-MYERS SQUIBB COMPANY-2024-003872

PATIENT
  Age: 87 Year
  Sex: Female
  Weight: 73.48 kg

DRUGS (12)
  1. ELIQUIS [Suspect]
     Active Substance: APIXABAN
     Indication: Atrial fibrillation
     Dosage: PILL
     Route: 048
  2. ELIQUIS [Suspect]
     Active Substance: APIXABAN
     Dosage: EVERY OTHER DAY
     Route: 048
     Dates: start: 202312, end: 20231224
  3. VANCOMYCIN [Concomitant]
     Active Substance: VANCOMYCIN
     Indication: Product used for unknown indication
  4. PROZAC [Concomitant]
     Active Substance: FLUOXETINE HYDROCHLORIDE
     Indication: Product used for unknown indication
  5. DIGOXIN [Concomitant]
     Active Substance: DIGOXIN
     Indication: Product used for unknown indication
  6. FUROSEMIDE [Concomitant]
     Active Substance: FUROSEMIDE
     Indication: Product used for unknown indication
  7. CARVEDILOL [Concomitant]
     Active Substance: CARVEDILOL
     Indication: Hypertension
  8. HYDRALAZINE [Concomitant]
     Active Substance: HYDRALAZINE HYDROCHLORIDE
     Indication: Hypertension
  9. LOSARTAN [Concomitant]
     Active Substance: LOSARTAN
     Indication: Hypertension
  10. OXYBUTYNIN [Concomitant]
     Active Substance: OXYBUTYNIN\OXYBUTYNIN CHLORIDE
     Indication: Bladder disorder
     Dosage: OXYBUTYNIN ER
  11. TRAMADOL [Concomitant]
     Active Substance: TRAMADOL\TRAMADOL HYDROCHLORIDE
     Indication: Bladder disorder
  12. TYLENOL [Concomitant]
     Active Substance: ACETAMINOPHEN
     Indication: Bladder disorder
     Dosage: EVERY 6 HOURS

REACTIONS (1)
  - Treatment noncompliance [Unknown]

NARRATIVE: CASE EVENT DATE: 20231201
